FAERS Safety Report 6559878-8 (Version None)
Quarter: 2010Q1

REPORT INFORMATION
  Report Type: 
  Country: None (occurrence: None)
  Receive Date: 20100129
  Receipt Date: 20090911
  Transmission Date: 20100710
  Serious: Yes (Other)
  Sender: FDA-Public Use
  Company Number: US-ABBOTT-09P-163-0597056-00

PATIENT
  Sex: Female

DRUGS (1)
  1. HUMIRA [Suspect]
     Indication: DRUG USE FOR UNKNOWN INDICATION
     Dosage: HAD MEDICATION ON 11 SEP 2009, INSTEAD OF 10 SEP 2009 WHEN MEDICATION WAS DUE PRESCRIBED.

REACTIONS (2)
  - DRUG DOSE OMISSION [None]
  - SURGERY [None]
